FAERS Safety Report 8319153-8 (Version None)
Quarter: 2012Q2

REPORT INFORMATION
  Report Type: 
  Country: None (occurrence: None)
  Receive Date: 20120427
  Receipt Date: 20120416
  Transmission Date: 20120825
  Serious: Yes (Hospitalization)
  Sender: FDA-Public Use
  Company Number: AT-JNJFOC-20120407580

PATIENT
  Sex: Female
  Weight: 64 kg

DRUGS (7)
  1. LAMOTRGINE [Concomitant]
     Route: 065
  2. RISPERDAL CONSTA [Suspect]
     Indication: ALCOHOLISM
     Route: 030
  3. VALPROIC ACID [Concomitant]
     Route: 065
  4. RISPERDAL CONSTA [Suspect]
     Indication: SCHIZOAFFECTIVE DISORDER
     Route: 030
  5. UNKNOWN MULTIPLE MEDICATION [Concomitant]
     Route: 065
  6. RISPERDAL CONSTA [Suspect]
     Indication: BIPOLAR I DISORDER
     Route: 030
  7. SEROQUEL [Concomitant]
     Route: 065

REACTIONS (4)
  - DELIRIUM [None]
  - PSYCHOTIC DISORDER [None]
  - THOUGHT WITHDRAWAL [None]
  - ANXIETY [None]
